FAERS Safety Report 5206601-5 (Version None)
Quarter: 2006Q4

REPORT INFORMATION
  Report Type: 
  Country: None (occurrence: None)
  Receive Date: 20061026
  Receipt Date: 20060907
  Transmission Date: 20070319
  Serious: No
  Sender: FDA-Public Use
  Company Number: 2006108955

PATIENT
  Age: 45 Year
  Sex: Female
  Weight: 61.2356 kg

DRUGS (6)
  1. LYRICA [Suspect]
     Indication: FIBROMYALGIA
     Dosage: (50 MG)
     Dates: start: 20060906
  2. CYTOMEL [Concomitant]
  3. LEVOTHYROXINE SODIUM [Concomitant]
  4. NEXIUM [Concomitant]
  5. ULTRAM [Concomitant]
  6. HOMEOPATHIC PREPARATION (HOMEOPATHIC PREPARATION) [Concomitant]

REACTIONS (3)
  - DIZZINESS [None]
  - SLEEP DISORDER [None]
  - SOMNOLENCE [None]
